FAERS Safety Report 7250470-9 (Version None)
Quarter: 2011Q1

REPORT INFORMATION
  Report Type: 
  Country: None (occurrence: None)
  Receive Date: 20110128
  Receipt Date: 20110114
  Transmission Date: 20110831
  Serious: Yes (Other)
  Sender: FDA-Public Use
  Company Number: PHHY2011JP03199

PATIENT
  Sex: Male
  Weight: 65 kg

DRUGS (25)
  1. SELBEX [Concomitant]
     Dosage: 150 MG, UNK
     Route: 048
     Dates: start: 20100628
  2. AMLODIPINE [Concomitant]
     Dosage: 5 MG, UNK
     Route: 048
  3. CARDENALIN [Concomitant]
     Indication: METASTATIC RENAL CELL CARCINOMA
     Dosage: 4 MG, UNK
     Route: 048
     Dates: start: 20100628
  4. AFINITOR [Suspect]
     Indication: METASTATIC RENAL CELL CARCINOMA
     Dosage: 10 MG, DAILY
     Route: 048
     Dates: start: 20100628, end: 20100803
  5. SUNITINIB MALATE [Concomitant]
     Dosage: 50 MG, UNK
     Route: 048
     Dates: start: 20090720, end: 20100607
  6. ATELEC [Concomitant]
     Dosage: 10 MG, UNK
     Route: 048
     Dates: start: 20100628
  7. LOXONIN [Concomitant]
     Dosage: 180 MG, UNK
     Route: 048
  8. GLYCYRON [Concomitant]
     Indication: PROPHYLAXIS
     Dosage: 2 DF, UNK
     Route: 048
  9. AFINITOR [Suspect]
     Dosage: 10 MG, DAILY
     Route: 048
     Dates: start: 20100824
  10. ZOMETA [Concomitant]
     Indication: METASTATIC RENAL CELL CARCINOMA
     Dosage: UNK
     Dates: start: 20100628
  11. ATELEC [Concomitant]
     Dosage: 10 MG, UNK
     Route: 048
  12. BLOPRESS [Concomitant]
     Dosage: 8 MG, UNK
     Route: 048
     Dates: start: 20100628
  13. OXYCONTIN [Concomitant]
     Indication: METASTATIC RENAL CELL CARCINOMA
     Dosage: 10 MG, UNK
     Route: 048
     Dates: start: 20100628
  14. OXYCONTIN [Concomitant]
     Dosage: 10 MG, UNK
     Route: 048
  15. CELESTAMINE TAB [Concomitant]
     Indication: PROPHYLAXIS
     Dosage: 2 DF, UNK
     Route: 048
  16. SENNOSIDE [Concomitant]
     Dosage: 24 MG, UNK
     Route: 048
     Dates: start: 20101108
  17. BLOPRESS [Concomitant]
     Dosage: 5 MG, UNK
     Route: 048
  18. NEO-MINOPHAGEN C [Concomitant]
     Dosage: 20 ML, UNK
     Route: 042
     Dates: start: 20100802, end: 20100805
  19. ALLEGRA [Concomitant]
     Indication: PROPHYLAXIS
     Dosage: 20 ML, UNK
  20. LOXONIN [Concomitant]
     Dosage: 180 MG, UNK
     Route: 048
     Dates: start: 20100628
  21. SELBEX [Concomitant]
     Dosage: 150 MG, UNK
     Route: 048
  22. BLOPRESS [Concomitant]
     Dosage: 8 MG, UNK
     Route: 048
  23. AMLODIPINE [Concomitant]
     Dosage: 5 MG, UNK
     Route: 048
     Dates: start: 20100628
  24. CARDENALIN [Concomitant]
     Dosage: 4 MG, UNK
     Route: 048
  25. DUROTEP [Concomitant]
     Indication: METASTATIC RENAL CELL CARCINOMA
     Dosage: 2.1 MG, UNK
     Route: 048
     Dates: start: 20101108

REACTIONS (2)
  - ERYTHEMA MULTIFORME [None]
  - NEOPLASM MALIGNANT [None]
